FAERS Safety Report 15587320 (Version 1)
Quarter: 2018Q4

REPORT INFORMATION
  Report Type: Spontaneous
  Country: US (occurrence: US)
  Receive Date: 20181101
  Receipt Date: 20181101
  Transmission Date: 20190205
  Serious: Yes (Hospitalization)
  Sender: FDA-Public Use
  Company Number: None

PATIENT
  Age: 71 Year
  Sex: Female
  Weight: 40.82 kg

DRUGS (4)
  1. 5-FLUOROURACIL (5-FU) [Suspect]
     Active Substance: FLUOROURACIL
     Dosage: ?          OTHER DOSE:282.50MG;?
     Dates: end: 20181011
  2. CAMPTOSAR [Suspect]
     Active Substance: IRINOTECAN HYDROCHLORIDE
     Dates: end: 20180606
  3. LEUCOVORIN CALCIUM. [Suspect]
     Active Substance: LEUCOVORIN CALCIUM
     Dates: end: 20181009
  4. ELOXATIN [Suspect]
     Active Substance: OXALIPLATIN
     Dosage: ?          OTHER DOSE:987.5 MG;?
     Dates: end: 20181009

REACTIONS (12)
  - Lower gastrointestinal haemorrhage [None]
  - Packed red blood cell transfusion [None]
  - Fall [None]
  - Fatigue [None]
  - Gastritis [None]
  - Mobility decreased [None]
  - Large intestine polyp [None]
  - Oesophagitis [None]
  - Anaemia [None]
  - Colon adenoma [None]
  - Haemorrhoids [None]
  - Gastritis erosive [None]

NARRATIVE: CASE EVENT DATE: 20181021
